FAERS Safety Report 8438134-7 (Version None)
Quarter: 2012Q2

REPORT INFORMATION
  Report Type: 
  Country: None (occurrence: None)
  Receive Date: 20120614
  Receipt Date: 20120606
  Transmission Date: 20120825
  Serious: Yes (Hospitalization)
  Sender: FDA-Public Use
  Company Number: PH-B.I. PHARMACEUTICALS,INC./RIDGEFIELD-2012-CS-00820RP

PATIENT
  Age: 91 Year
  Sex: Male

DRUGS (3)
  1. MOBIC [Suspect]
     Route: 048
     Dates: start: 20120501, end: 20120501
  2. UNSPECIFIED HYPERTENSIVE DRUG [Concomitant]
  3. OMEPRAZOLE [Concomitant]

REACTIONS (4)
  - LOWER GASTROINTESTINAL HAEMORRHAGE [None]
  - SEPSIS [None]
  - UPPER GASTROINTESTINAL HAEMORRHAGE [None]
  - RENAL FAILURE ACUTE [None]
